FAERS Safety Report 19507326 (Version 2)
Quarter: 2021Q3

REPORT INFORMATION
  Report Type: Spontaneous
  Country: FR (occurrence: FR)
  Receive Date: 20210708
  Receipt Date: 20210816
  Transmission Date: 20211014
  Serious: Yes (Other)
  Sender: FDA-Public Use
  Company Number: FR-MYLANLABS-2021M1038822

PATIENT
  Age: 57 Year
  Sex: Male
  Weight: 47 kg

DRUGS (6)
  1. SYMBICORT [Suspect]
     Active Substance: BUDESONIDE\FORMOTEROL FUMARATE DIHYDRATE
     Indication: ASTHMA
     Dosage: 4 DOSAGE FORM, QD 2 DOSES 2 FOIS/J
     Route: 055
     Dates: start: 20201116
  2. DEXAMETHASONE. [Suspect]
     Active Substance: DEXAMETHASONE
     Indication: CORONAVIRUS INFECTION
     Dosage: 6 MILLIGRAM, QD
     Route: 042
     Dates: start: 20201116, end: 20201119
  3. AUGMENTIN [Concomitant]
     Active Substance: AMOXICILLIN\CLAVULANATE POTASSIUM
     Indication: LUNG DISORDER
     Dosage: 3 GRAM, QD
     Route: 048
     Dates: start: 20201116, end: 20201123
  4. REMDESIVIR. [Concomitant]
     Active Substance: REMDESIVIR
     Indication: CORONAVIRUS INFECTION
     Dosage: 100 MILLIGRAM, QD
     Route: 042
     Dates: start: 20201116, end: 20201119
  5. MEDROL [Suspect]
     Active Substance: METHYLPREDNISOLONE
     Indication: CORONAVIRUS INFECTION
     Dosage: 2 DOSAGE FORM, QD 2CP/J
     Route: 048
     Dates: start: 20201120, end: 20201125
  6. INNOHEP [Concomitant]
     Active Substance: TINZAPARIN SODIUM
     Dosage: 9000 INTERNATIONAL UNIT, QD
     Route: 058
     Dates: start: 20201116, end: 20201122

REACTIONS (3)
  - Steroid diabetes [Recovered/Resolved]
  - Blood glucose increased [Not Recovered/Not Resolved]
  - Off label use [Unknown]

NARRATIVE: CASE EVENT DATE: 20201121
